FAERS Safety Report 5268300-3 (Version None)
Quarter: 2007Q1

REPORT INFORMATION
  Report Type: 
  Country: None (occurrence: None)
  Receive Date: 20070313
  Receipt Date: 20070221
  Transmission Date: 20070707
  Serious: Yes (Hospitalization)
  Sender: FDA-Public Use
  Company Number: 2006PV022264

PATIENT
  Age: 56 Year
  Sex: Female
  Weight: 58.9676 kg

DRUGS (6)
  1. SYMLIN [Suspect]
     Dosage: 36 MCG;TID;SC; 36 MCG;QD;SC
     Route: 058
     Dates: start: 20060601, end: 20060101
  2. SYMLIN [Suspect]
     Dosage: 36 MCG;TID;SC; 36 MCG;QD;SC
     Route: 058
     Dates: start: 20060101, end: 20060901
  3. NOVOLIN N [Concomitant]
  4. NOVOLOG [Concomitant]
  5. NEXIUM [Concomitant]
  6. PRAVACHOL [Concomitant]

REACTIONS (11)
  - ABDOMINAL DISTENSION [None]
  - ABDOMINAL PAIN [None]
  - BLOOD GLUCOSE INCREASED [None]
  - BLOOD LACTATE DEHYDROGENASE INCREASED [None]
  - CARCINOEMBRYONIC ANTIGEN INCREASED [None]
  - CONDITION AGGRAVATED [None]
  - DYSPEPSIA [None]
  - GLYCOSYLATED HAEMOGLOBIN INCREASED [None]
  - HEPATIC NEOPLASM [None]
  - IRRITABLE BOWEL SYNDROME [None]
  - LIVER SCAN ABNORMAL [None]
